FAERS Safety Report 9773981 (Version 3)
Quarter: 2014Q4

REPORT INFORMATION
  Report Type: Report from Study
  Country: US (occurrence: US)
  Receive Date: 20131220
  Receipt Date: 20141103
  Transmission Date: 20150529
  Serious: Yes (Hospitalization, Other)
  Sender: FDA-Public Use
  Company Number: US-BIOGENIDEC-2013BI120661

PATIENT
  Age: 53 Year
  Sex: Male
  Weight: 68 kg

DRUGS (8)
  1. AVONEX [Suspect]
     Active Substance: INTERFERON BETA-1A
     Indication: MULTIPLE SCLEROSIS
     Route: 030
     Dates: start: 20101228
  2. AVONEX [Suspect]
     Active Substance: INTERFERON BETA-1A
     Indication: MULTIPLE SCLEROSIS
     Route: 030
     Dates: start: 20131210
  3. AVONEX [Suspect]
     Active Substance: INTERFERON BETA-1A
     Indication: MULTIPLE SCLEROSIS
     Route: 030
     Dates: start: 20010702, end: 20070723
  4. ZANAFLEX [Concomitant]
     Active Substance: TIZANIDINE HYDROCHLORIDE
     Route: 048
  5. GABAPENTIN. [Concomitant]
     Active Substance: GABAPENTIN
     Route: 048
  6. AVONEX [Suspect]
     Active Substance: INTERFERON BETA-1A
     Indication: MULTIPLE SCLEROSIS
     Route: 030
  7. HYDROCODONE/ACETAMINOPHEN [Concomitant]
     Active Substance: ACETAMINOPHEN\HYDROCODONE
     Route: 048
  8. BACLOFEN. [Concomitant]
     Active Substance: BACLOFEN
     Route: 048

REACTIONS (18)
  - Unresponsive to stimuli [Recovered/Resolved]
  - Abnormal behaviour [Unknown]
  - Progressive multiple sclerosis [Not Recovered/Not Resolved]
  - Generalised tonic-clonic seizure [Recovered/Resolved]
  - Osteonecrosis [Unknown]
  - Confusional state [Unknown]
  - Fall [Recovered/Resolved]
  - Multiple sclerosis relapse [Unknown]
  - Cluster headache [Unknown]
  - Substance abuse [Unknown]
  - Intervertebral disc degeneration [Unknown]
  - Overdose [Unknown]
  - Acute respiratory failure [Unknown]
  - Carpal tunnel syndrome [Not Recovered/Not Resolved]
  - Insomnia [Not Recovered/Not Resolved]
  - Suicide attempt [Unknown]
  - Nerve compression [Unknown]
  - Anxiety [Not Recovered/Not Resolved]

NARRATIVE: CASE EVENT DATE: 201302
